FAERS Safety Report 5198381-7 (Version None)
Quarter: 2006Q4

REPORT INFORMATION
  Report Type: 
  Country: None (occurrence: None)
  Receive Date: 20061229
  Receipt Date: 20061213
  Transmission Date: 20070319
  Serious: Yes (Hospitalization)
  Sender: FDA-Public Use
  Company Number: 2006BI018222

PATIENT
  Age: 40 Year
  Sex: Female
  Weight: 56.6996 kg

DRUGS (2)
  1. AVONEX [Suspect]
     Indication: MULTIPLE SCLEROSIS
     Dosage: 30 UG QW; IM
     Route: 030
  2. AVONEX [Suspect]
     Indication: MULTIPLE SCLEROSIS
     Dosage: 30 UG QW; IM
     Route: 030

REACTIONS (12)
  - AMNESIA [None]
  - APHASIA [None]
  - ASTHENIA [None]
  - BLINDNESS [None]
  - CENTRAL NERVOUS SYSTEM INFECTION [None]
  - CEREBROVASCULAR ACCIDENT [None]
  - COMA [None]
  - INTRACRANIAL ANEURYSM [None]
  - SHUNT INFECTION [None]
  - SLEEP DISORDER [None]
  - STRESS [None]
  - VISUAL ACUITY REDUCED [None]
